FAERS Safety Report 7982950-2 (Version None)
Quarter: 2011Q4

REPORT INFORMATION
  Report Type: 
  Country: None (occurrence: None)
  Receive Date: 20111123
  Receipt Date: 20110829
  Transmission Date: 20120403
  Serious: No
  Sender: FDA-Public Use
  Company Number: 338029

PATIENT
  Sex: Female

DRUGS (1)
  1. VICTOZA [Suspect]
     Indication: DIABETES MELLITUS
     Dosage: , SUBCUTANEOUS
     Route: 058

REACTIONS (2)
  - INJECTION SITE REACTION [None]
  - INCORRECT PRODUCT STORAGE [None]
